FAERS Safety Report 17806503 (Version 4)
Quarter: 2022Q1

REPORT INFORMATION
  Report Type: Spontaneous
  Country: PL (occurrence: PL)
  Receive Date: 20200520
  Receipt Date: 20220222
  Transmission Date: 20220423
  Serious: Yes (Life-Threatening, Hospitalization, Other)
  Sender: FDA-Public Use
  Company Number: PL-TEVA-2020-PL-1235130

PATIENT
  Age: 51 Year
  Sex: Female
  Weight: 65 kg

DRUGS (4)
  1. QUETIAPINE [Suspect]
     Active Substance: QUETIAPINE
     Indication: Delusion
     Dosage: 400 MILLIGRAM DAILY; UP TITRATION OF THE QUETIAPINE DOSE TOOK 9 DAYS
     Route: 048
     Dates: start: 2017
  2. ARIPIPRAZOLE [Suspect]
     Active Substance: ARIPIPRAZOLE
     Indication: Delusion
     Dosage: 7.5 GBQ DAILY; WAS INITIATED AT A DOSE OF 7.5 MG/D IN ORDER TO REDUCE DELUSIONS AND WAS UP TITRATED
     Route: 048
     Dates: start: 2017
  3. ARIPIPRAZOLE [Suspect]
     Active Substance: ARIPIPRAZOLE
     Indication: Bipolar disorder
  4. LAMOTRIGINE [Suspect]
     Active Substance: LAMOTRIGINE
     Indication: Bipolar disorder
     Dosage: 200 MILLIGRAM DAILY; THE DOSAGE WAS THEN INCREASED TO 50 MG/D FOR A WEEK, AND THEN INCREMENTALLY INC
     Route: 048
     Dates: start: 2017

REACTIONS (4)
  - Neuroleptic malignant syndrome [Recovered/Resolved]
  - Toxicity to various agents [Recovering/Resolving]
  - Renal failure [Recovering/Resolving]
  - Extrapyramidal disorder [Recovering/Resolving]

NARRATIVE: CASE EVENT DATE: 20150101
